FAERS Safety Report 4946829-2 (Version None)
Quarter: 2006Q1

REPORT INFORMATION
  Report Type: 
  Country: None (occurrence: None)
  Receive Date: 20060317
  Receipt Date: 20051115
  Transmission Date: 20060701
  Serious: Yes (Death)
  Sender: FDA-Public Use
  Company Number: US-MERCK-0511USA02591

PATIENT
  Sex: Female

DRUGS (3)
  1. VIOXX [Suspect]
     Route: 048
     Dates: start: 20031001, end: 20031101
  2. BEXTRA [Concomitant]
     Route: 065
     Dates: start: 20031120, end: 20031222
  3. CELEBREX [Concomitant]
     Route: 065

REACTIONS (3)
  - CARDIAC DISORDER [None]
  - INJURY [None]
  - MYOCARDIAL INFARCTION [None]
